FAERS Safety Report 12476687 (Version 5)
Quarter: 2020Q3

REPORT INFORMATION
  Report Type: Report from Study
  Country: US (occurrence: US)
  Receive Date: 20160617
  Receipt Date: 20160801
  Transmission Date: 20201105
  Serious: Yes (Life-Threatening, Hospitalization)
  Sender: FDA-Public Use
  Company Number: US-PFIZER INC-2016261692

PATIENT
  Age: 63 Year
  Sex: Male
  Weight: 93.8 kg

DRUGS (39)
  1. MEDI4736 [Suspect]
     Active Substance: DURVALUMAB
     Dosage: ONCE EVERY TWO WEEKS
     Route: 042
     Dates: start: 20160517, end: 20160517
  2. CLINDAMYCIN. [Concomitant]
     Active Substance: CLINDAMYCIN
     Dosage: UNK
     Dates: start: 20160513, end: 20160513
  3. TREMELIMUMAB. [Suspect]
     Active Substance: TREMELIMUMAB
     Dosage: 1 MG/KG, MONTHLY
     Route: 042
     Dates: start: 20160126, end: 20160126
  4. TREMELIMUMAB. [Suspect]
     Active Substance: TREMELIMUMAB
     Dosage: 1 MG, MONTHLY
     Route: 042
     Dates: start: 20160223, end: 20160223
  5. MEDI4736 [Suspect]
     Active Substance: DURVALUMAB
     Dosage: ONCE EVERY TWO WEEKS
     Route: 042
     Dates: start: 20160126, end: 20160126
  6. MEDI4736 [Suspect]
     Active Substance: DURVALUMAB
     Dosage: ONCE EVERY TWO WEEKS
     Route: 042
     Dates: start: 20160505, end: 20160505
  7. MEDI4736 [Suspect]
     Active Substance: DURVALUMAB
     Dosage: ONCE EVERY TWO WEEKS
     Route: 042
     Dates: start: 20160616
  8. GABAPENTIN. [Concomitant]
     Active Substance: GABAPENTIN
     Indication: BACK PAIN
     Dosage: 200 MG, 3X/DAY
     Route: 048
     Dates: start: 20140225
  9. OXYGEN. [Concomitant]
     Active Substance: OXYGEN
     Indication: DYSPNOEA
     Dosage: 2 L, 1X/DAY
     Route: 055
     Dates: start: 201603
  10. PROCHLORPERAZINE. [Concomitant]
     Active Substance: PROCHLORPERAZINE
     Indication: PROPHYLAXIS
     Route: 065
     Dates: start: 20150518
  11. SERTRALINE [Concomitant]
     Active Substance: SERTRALINE HYDROCHLORIDE
     Route: 065
     Dates: start: 20150518
  12. CEFTRIAXONE. [Concomitant]
     Active Substance: CEFTRIAXONE
     Route: 065
     Dates: start: 20160513, end: 20160513
  13. TREMELIMUMAB. [Suspect]
     Active Substance: TREMELIMUMAB
     Indication: SQUAMOUS CELL CARCINOMA OF HEAD AND NECK
     Dosage: 1 MG/KG, MONTHLY
     Route: 042
     Dates: start: 20151229, end: 20151229
  14. FENTANYL. [Concomitant]
     Active Substance: FENTANYL
     Indication: OROPHARYNGEAL PAIN
     Dosage: 1.0MG AS REQUIRED
     Route: 003
     Dates: start: 201511
  15. ZOSYN [Concomitant]
     Active Substance: PIPERACILLIN SODIUM\TAZOBACTAM SODIUM
     Indication: PROPHYLAXIS
     Route: 065
     Dates: start: 20160131, end: 20160406
  16. TREMELIMUMAB. [Suspect]
     Active Substance: TREMELIMUMAB
     Dosage: 1 MG/KG, MONTHLY
     Route: 042
     Dates: start: 20160616
  17. TRAZODONE [Concomitant]
     Active Substance: TRAZODONE HYDROCHLORIDE
     Indication: OROPHARYNGEAL PAIN
     Dosage: 12.5 MG, 4X/DAY
     Route: 048
     Dates: start: 201401
  18. PRILOSEC [Concomitant]
     Active Substance: OMEPRAZOLE MAGNESIUM
     Indication: REFLUX GASTRITIS
     Dosage: 40 MG, 1X/DAY
     Route: 048
     Dates: start: 20150825
  19. MAGIC MOUTHWASH [Concomitant]
     Active Substance: DIPHENHYDRAMINE HYDROCHLORIDE\LIDOCAINE HYDROCHLORIDE\NYSTATIN
     Indication: PROPHYLAXIS
     Route: 065
     Dates: start: 20150518
  20. SULTAMICILLIN TOSILATE [Concomitant]
     Dosage: UNK
     Dates: start: 20160513, end: 20160513
  21. MEDI4736 [Suspect]
     Active Substance: DURVALUMAB
     Dosage: ONCE EVERY TWO WEEKS
     Route: 042
     Dates: start: 20160606
  22. OXYCODONE [Concomitant]
     Active Substance: OXYCODONE
     Indication: OROPHARYNGEAL PAIN
     Dosage: 5.0MG AS REQUIRED
     Route: 048
     Dates: start: 20160108
  23. LORAZEPAM. [Concomitant]
     Active Substance: LORAZEPAM
     Indication: PROPHYLAXIS
     Route: 065
     Dates: start: 20150518
  24. TREMELIMUMAB. [Suspect]
     Active Substance: TREMELIMUMAB
     Dosage: 1 MG/KG, MONTHLY
     Route: 042
     Dates: start: 20160322, end: 20160322
  25. MEDI4736 [Suspect]
     Active Substance: DURVALUMAB
     Dosage: ONCE EVERY TWO WEEKS
     Route: 042
     Dates: start: 20160419, end: 20160419
  26. FLUTICASONE PROPIONATE. [Concomitant]
     Active Substance: FLUTICASONE PROPIONATE
     Indication: SEASONAL ALLERGY
     Dosage: 50 MG, 1X/DAY
     Route: 045
     Dates: start: 1995
  27. LANOLIN. [Concomitant]
     Active Substance: LANOLIN
     Indication: PROPHYLAXIS
     Dosage: 1.0MG AS REQUIRED
     Route: 003
     Dates: start: 20150701
  28. EMLA [Concomitant]
     Active Substance: LIDOCAINE\PRILOCAINE
     Indication: PROPHYLAXIS
     Dosage: 2.5% AS REQUIRED
     Route: 003
     Dates: start: 201505
  29. VANCOMYCIN [Concomitant]
     Active Substance: VANCOMYCIN
     Route: 065
     Dates: start: 20160513, end: 20160513
  30. AUGMENTIN [Concomitant]
     Active Substance: AMOXICILLIN\CLAVULANATE POTASSIUM
     Dosage: UNK
     Dates: start: 20160515
  31. MORPHINE SULFATE. [Suspect]
     Active Substance: MORPHINE SULFATE
     Dosage: 20 MG/ML, UNK
     Dates: start: 20160131, end: 20160206
  32. MEDI4736 [Suspect]
     Active Substance: DURVALUMAB
     Dosage: ONCE EVERY TWO WEEKS
     Route: 042
     Dates: start: 20160223, end: 20160223
  33. MEDI4736 [Suspect]
     Active Substance: DURVALUMAB
     Dosage: ONCE EVERY TWO WEEKS
     Route: 042
     Dates: start: 20160322, end: 20160322
  34. DOXYCYCLINE. [Concomitant]
     Active Substance: DOXYCYCLINE
     Indication: ACNE
     Dosage: 100.0MG AS REQUIRED
     Route: 048
     Dates: start: 201505
  35. ZOSYN [Concomitant]
     Active Substance: PIPERACILLIN SODIUM\TAZOBACTAM SODIUM
     Dosage: UNK
     Route: 065
     Dates: start: 20160513, end: 20160515
  36. TREMELIMUMAB. [Suspect]
     Active Substance: TREMELIMUMAB
     Dosage: 1 MG/KG, MONTHLY
     Route: 042
     Dates: start: 20160606
  37. MEDI4736 [Suspect]
     Active Substance: DURVALUMAB
     Indication: SQUAMOUS CELL CARCINOMA OF HEAD AND NECK
     Dosage: ONCE EVERY TWO WEEKS
     Route: 042
     Dates: start: 20151229, end: 20151229
  38. FLOMAX [Concomitant]
     Active Substance: TAMSULOSIN HYDROCHLORIDE
     Indication: ERECTILE DYSFUNCTION
     Dosage: 0.4 MG, 1X/DAY
     Route: 048
     Dates: start: 2011
  39. OXYCODONE [Concomitant]
     Active Substance: OXYCODONE
     Dosage: UNK
     Route: 048
     Dates: start: 20160516

REACTIONS (2)
  - Mastoiditis [Not Recovered/Not Resolved]
  - Haemoptysis [Recovered/Resolved]

NARRATIVE: CASE EVENT DATE: 20160501
